FAERS Safety Report 7353325-4 (Version None)
Quarter: 2011Q1

REPORT INFORMATION
  Report Type: 
  Country: None (occurrence: None)
  Receive Date: 20110315
  Receipt Date: 20110301
  Transmission Date: 20110831
  Serious: Yes (Hospitalization, Other)
  Sender: FDA-Public Use
  Company Number: ES-MERCK-1102ESP00029

PATIENT
  Age: 65 Year
  Sex: Male

DRUGS (2)
  1. INVANZ [Suspect]
     Indication: CHOLECYSTITIS ACUTE
     Route: 042
     Dates: start: 20101212, end: 20101216
  2. INVANZ [Suspect]
     Indication: GALLBLADDER ABSCESS
     Route: 042
     Dates: start: 20101212, end: 20101216

REACTIONS (5)
  - BILIARY FISTULA [None]
  - CHOLECYSTITIS ACUTE [None]
  - GRAND MAL CONVULSION [None]
  - NO THERAPEUTIC RESPONSE [None]
  - LIVER ABSCESS [None]
